FAERS Safety Report 12937404 (Version 1)
Quarter: 2016Q4

REPORT INFORMATION
  Report Type: Spontaneous
  Country: US (occurrence: US)
  Receive Date: 20161114
  Receipt Date: 20161114
  Transmission Date: 20170207
  Serious: No
  Sender: FDA-Public Use
  Company Number: US-GALDERMA-US15008744

PATIENT
  Sex: Female

DRUGS (1)
  1. CLOBETASOL 0.05% SPRAY ACTAVIS [Suspect]
     Active Substance: CLOBETASOL
     Indication: PRODUCT USE ISSUE
     Dosage: 0.05%
     Route: 061

REACTIONS (1)
  - Drug ineffective [Unknown]
